FAERS Safety Report 21633330 (Version 1)
Quarter: 2022Q4

REPORT INFORMATION
  Report Type: Spontaneous
  Country: JP (occurrence: JP)
  Receive Date: 20221123
  Receipt Date: 20221123
  Transmission Date: 20230113
  Serious: Yes (Other)
  Sender: FDA-Public Use
  Company Number: JP-ASPEN-JPG2020JP010478AA

PATIENT
  Age: 14 Year
  Sex: Male

DRUGS (18)
  1. DEXAMETHASONE [Suspect]
     Active Substance: DEXAMETHASONE
     Indication: B precursor type acute leukaemia
     Dosage: 10 MG/M2
     Route: 065
  2. DEXAMETHASONE [Suspect]
     Active Substance: DEXAMETHASONE
     Dosage: 5 MG/M2
     Route: 065
  3. ASPARAGINASE [Suspect]
     Active Substance: ASPARAGINASE
     Indication: B precursor type acute leukaemia
     Dosage: UNK (PREPHASE AND INDUCTION)
     Route: 065
  4. ASPARAGINASE [Suspect]
     Active Substance: ASPARAGINASE
     Dosage: UNK (FIRST RE-INDUCTION)
     Route: 065
  5. ASPARAGINASE [Suspect]
     Active Substance: ASPARAGINASE
     Dosage: UNK (SECOND RE-INDUCTION)
     Route: 065
  6. HYDROCORTISONE [Suspect]
     Active Substance: HYDROCORTISONE
     Indication: B precursor type acute leukaemia
     Dosage: UNK (FIRST RE-INDUCTION)
     Route: 065
  7. HYDROCORTISONE [Suspect]
     Active Substance: HYDROCORTISONE
     Dosage: UNK (SECOND RE-INDUCTION)
     Route: 065
  8. VINCRISTINE [Concomitant]
     Active Substance: VINCRISTINE
     Indication: B precursor type acute leukaemia
     Dosage: UNK (PREPHASE AND INDUCATION ON 8,15,22,29)
     Route: 065
  9. VINCRISTINE [Concomitant]
     Active Substance: VINCRISTINE
     Dosage: UNK (FIRST RE-INDUCTION ON 207 AND 214)
     Route: 065
  10. VINCRISTINE [Concomitant]
     Active Substance: VINCRISTINE
     Dosage: UNK (SECOND RE-INDUCTION ON 333 AND 340))
     Route: 065
  11. PIRARUBICIN HYDROCHLORIDE [Concomitant]
     Active Substance: PIRARUBICIN HYDROCHLORIDE
     Indication: B precursor type acute leukaemia
     Dosage: UNK (FIRST RE-INDUCTION ON 207 AND 214)
     Route: 065
  12. PIRARUBICIN HYDROCHLORIDE [Concomitant]
     Active Substance: PIRARUBICIN HYDROCHLORIDE
     Dosage: UNK (SECOND RE-INDUCTION ON 333 AND 340)
     Route: 065
  13. CYCLOPHOSPHAMIDE [Concomitant]
     Active Substance: CYCLOPHOSPHAMIDE
     Indication: B precursor type acute leukaemia
     Dosage: UNK (FIRST RE-INDUCTION)
     Route: 065
  14. CYCLOPHOSPHAMIDE [Concomitant]
     Active Substance: CYCLOPHOSPHAMIDE
     Dosage: UNK (SECOND RE-INDUCTION)
     Route: 065
  15. CYTARABINE [Concomitant]
     Active Substance: CYTARABINE
     Indication: B precursor type acute leukaemia
     Dosage: UNK (FIRST RE-INDUCTION)
     Route: 065
  16. CYTARABINE [Concomitant]
     Active Substance: CYTARABINE
     Dosage: UNK (SECOND RE-INDUCTION)
     Route: 065
  17. MERCAPTOPURINE [Concomitant]
     Active Substance: MERCAPTOPURINE
     Indication: B precursor type acute leukaemia
     Dosage: UNK (FIRST RE-INDUCTION)
     Route: 065
  18. MERCAPTOPURINE [Concomitant]
     Active Substance: MERCAPTOPURINE
     Dosage: UNK (SECOND RE-INDUCTION)
     Route: 065

REACTIONS (2)
  - Type 1 diabetes mellitus [Unknown]
  - Product use in unapproved indication [Unknown]
